FAERS Safety Report 20012138 (Version 1)
Quarter: 2021Q4

REPORT INFORMATION
  Report Type: Spontaneous
  Country: US (occurrence: US)
  Receive Date: 20211029
  Receipt Date: 20211029
  Transmission Date: 20220303
  Serious: Yes (Hospitalization, Other)
  Sender: FDA-Public Use
  Company Number: 2021A784707

PATIENT
  Age: 43 Year
  Sex: Male
  Weight: 90.7 kg

DRUGS (2)
  1. TAGRISSO [Suspect]
     Active Substance: OSIMERTINIB
     Indication: Lung neoplasm malignant
     Route: 048
     Dates: start: 202106
  2. TAGRISSO [Suspect]
     Active Substance: OSIMERTINIB
     Indication: Lung neoplasm malignant
     Route: 048
     Dates: start: 202105, end: 202106

REACTIONS (13)
  - Localised infection [Recovered/Resolved]
  - Thrombosis [Recovered/Resolved]
  - Pulmonary embolism [Recovered/Resolved]
  - Clostridium difficile infection [Not Recovered/Not Resolved]
  - Fall [Not Recovered/Not Resolved]
  - Lower limb fracture [Not Recovered/Not Resolved]
  - Osteomyelitis [Recovered/Resolved]
  - Brain oedema [Unknown]
  - Immunosuppression [Unknown]
  - Loss of consciousness [Unknown]
  - Orthostatic hypotension [Not Recovered/Not Resolved]
  - Blood pressure decreased [Unknown]
  - Skin laceration [Unknown]

NARRATIVE: CASE EVENT DATE: 20210101
